FAERS Safety Report 14884388 (Version 1)
Quarter: 2018Q2

REPORT INFORMATION
  Report Type: Spontaneous
  Country: US (occurrence: US)
  Receive Date: 20180511
  Receipt Date: 20180511
  Transmission Date: 20180711
  Serious: No
  Sender: FDA-Public Use
  Company Number: US-BAYER-2018-083974

PATIENT
  Age: 2 Year
  Sex: Male

DRUGS (3)
  1. VASELINE PURE [Concomitant]
     Active Substance: PETROLATUM
  2. AQUAPHOR [MINERAL OIL LIGHT,PARAFFIN,PETROLATUM,WOOL ALCOHOLS] [Concomitant]
  3. LOTRIMIN ULTRA ANTIFUNGAL [Suspect]
     Active Substance: BUTENAFINE HYDROCHLORIDE
     Indication: RASH
     Dosage: UNK
     Route: 061

REACTIONS (2)
  - Rash [Unknown]
  - Drug administered to patient of inappropriate age [Unknown]
